FAERS Safety Report 8484551 (Version 2)
Quarter: 2012Q4

REPORT INFORMATION
  Report Type: Spontaneous
  Country: US (occurrence: None)
  Receive Date: 20120326
  Receipt Date: 20120926
  Transmission Date: 20130627
  Serious: Yes (Other)
  Sender: FDA-Public Use
  Company Number: AUR-APL-2012-01500

PATIENT
  Age: 54 Year
  Sex: Female
  Weight: 130 kg

DRUGS (3)
  1. HYDROCHLOROTHIAZIDE [Suspect]
     Indication: FLUID RETENTION
     Dosage: half tablets of 25mg
     Dates: start: 2007
  2. CELEBREX [Suspect]
     Indication: SPONDYLITIS
     Dosage: (200 MG, 2 IN 1 D)
     Dates: start: 2007
  3. LORATADINE [Concomitant]

REACTIONS (3)
  - CHRONIC OBSTRUCTIVE PULMONARY DISEASE [None]
  - THYROID DISORDER [None]
  - LARYNGITIS [None]
